FAERS Safety Report 11137869 (Version 1)
Quarter: 2015Q2

REPORT INFORMATION
  Report Type: Spontaneous
  Country: US (occurrence: US)
  Receive Date: 20150526
  Receipt Date: 20150526
  Transmission Date: 20150821
  Serious: No
  Sender: FDA-Public Use
  Company Number: US-MALLINCKRODT-T201501029

PATIENT
  Sex: Female

DRUGS (1)
  1. H.P. ACTHAR [Suspect]
     Active Substance: CORTICOTROPIN
     Indication: FOCAL SEGMENTAL GLOMERULOSCLEROSIS
     Dosage: 80 U, TWICE PER WEEK
     Route: 065
     Dates: start: 20131201

REACTIONS (5)
  - Swelling face [Unknown]
  - Vision blurred [Unknown]
  - Eyelid oedema [Unknown]
  - Blood glucose increased [Unknown]
  - Nausea [Unknown]
